FAERS Safety Report 24561413 (Version 1)
Quarter: 2024Q4

REPORT INFORMATION
  Report Type: Spontaneous
  Country: US (occurrence: None)
  Receive Date: 20241029
  Receipt Date: 20241029
  Transmission Date: 20250115
  Serious: Yes (Hospitalization)
  Sender: Public
  Company Number: None

PATIENT
  Sex: Female

DRUGS (6)
  1. BOTOX [Suspect]
     Active Substance: ONABOTULINUMTOXINA
     Indication: Migraine
     Dosage: OTHER STRENGTH : 100 UNIT;?OTHER QUANTITY : 156 UNITS;?OTHER FREQUENCY : EVERY 12 WEEKS;?FREQ: TO BE
     Route: 030
     Dates: start: 20200207
  2. AIMOVIG [Concomitant]
     Active Substance: ERENUMAB-AOOE
  3. AMIODARONE [Concomitant]
     Active Substance: AMIODARONE
  4. ASPIRIN LOW EC [Concomitant]
  5. METOPROLOL SUCCINATE [Concomitant]
     Active Substance: METOPROLOL SUCCINATE
  6. POTASSIUM CHLORIDE [Concomitant]
     Active Substance: POTASSIUM CHLORIDE

REACTIONS (1)
  - Heart rate increased [None]
